FAERS Safety Report 20593922 (Version 2)
Quarter: 2022Q1

REPORT INFORMATION
  Report Type: Spontaneous
  Country: US (occurrence: None)
  Receive Date: 20220315
  Receipt Date: 20220315
  Transmission Date: 20220423
  Serious: No
  Sender: FDA-Public Use
  Company Number: US-ROCHE-2796789

PATIENT
  Age: 78 Year
  Sex: Female

DRUGS (2)
  1. XOLAIR [Suspect]
     Active Substance: OMALIZUMAB
     Indication: Urticaria
     Route: 065
     Dates: start: 20210112
  2. COVID-19 VACCINE [Concomitant]

REACTIONS (5)
  - Vomiting [Recovering/Resolving]
  - Illness [Recovering/Resolving]
  - Fatigue [Recovering/Resolving]
  - Ill-defined disorder [Recovering/Resolving]
  - Feeding disorder [Recovering/Resolving]

NARRATIVE: CASE EVENT DATE: 20210127
